FAERS Safety Report 8021370-1 (Version None)
Quarter: 2012Q1

REPORT INFORMATION
  Report Type: 
  Country: None (occurrence: None)
  Receive Date: 20120104
  Receipt Date: 20111228
  Transmission Date: 20120608
  Serious: Yes (Hospitalization, Other)
  Sender: FDA-Public Use
  Company Number: FR-PFIZER INC-2011314541

PATIENT
  Age: 64 Year
  Sex: Female

DRUGS (20)
  1. ALPRAZOLAM [Suspect]
     Dosage: 50 MG, 2X/DAY
     Route: 048
     Dates: end: 20111207
  2. PINAVERIUM BROMIDE [Suspect]
     Dosage: 100 MG, 2X/DAY
     Route: 048
     Dates: end: 20111207
  3. KETOPROFEN [Suspect]
     Dosage: 100 MG, DAILY
     Route: 048
     Dates: end: 20111207
  4. PLAVIX [Concomitant]
     Dosage: 75 MG DAILY
  5. ACETAMINOPHEN [Concomitant]
     Indication: PAIN
     Dosage: UNK
  6. CHIBRO-CADRON [Suspect]
     Dosage: UNK
     Route: 047
     Dates: end: 20111207
  7. LEVOTHYROXINE SODIUM [Suspect]
     Dosage: 100 UG, 1X/DAY
     Route: 048
     Dates: end: 20111207
  8. SYMBICORT [Concomitant]
     Dosage: 2 DOSAGE FORM DAILY
  9. LIORESAL [Concomitant]
     Dosage: 6 DOSAGE FORM DAILY
  10. METHOCARBAMOL [Suspect]
     Dosage: 500 MG, 6 PER DAY
     Route: 048
     Dates: end: 20111207
  11. METFORMIN [Concomitant]
     Dosage: 850 MG DAILY
  12. CITALOPRAM HYDROBROMIDE [Concomitant]
     Dosage: 60 MG DAILY
  13. TRANSIPEG [Concomitant]
     Dosage: 5 DOSAGE FORM DAILY
  14. LYRICA [Suspect]
     Dosage: 150 MG, 6 PER DAY
     Route: 048
     Dates: end: 20111207
  15. MEPRONIZINE [Suspect]
     Dosage: 1 DF, 1X/DAY
     Route: 048
     Dates: end: 20111207
  16. NORMACOL [Concomitant]
     Dosage: 2 DOSAGE FORM PER WEEK
  17. PRAZEPAM [Suspect]
     Dosage: 10 MG, 2X/DAY
     Route: 048
     Dates: end: 20111207
  18. LASIX [Suspect]
     Dosage: 40 MG, 1X/DAY
     Route: 048
     Dates: end: 20111207
  19. DESLORATADINE [Concomitant]
     Dosage: 1 DOSAGE FORM DAILY
  20. PANTOPRAZOLE [Concomitant]
     Dosage: 80 MG DAILY

REACTIONS (6)
  - MYOCLONUS [None]
  - INFLAMMATION [None]
  - OLIGURIA [None]
  - METABOLIC ENCEPHALOPATHY [None]
  - CONFUSIONAL STATE [None]
  - WEIGHT INCREASED [None]
